FAERS Safety Report 8988422 (Version 1)
Quarter: 2012Q4

REPORT INFORMATION
  Report Type: 
  Country: US (occurrence: None)
  Receive Date: 20121221
  Receipt Date: 20121221
  Transmission Date: 20130627
  Serious: Yes (Hospitalization)
  Sender: FDA-Public Use
  Company Number: None

PATIENT
  Sex: Male
  Weight: 46.6 kg

DRUGS (5)
  1. MERCAPTOPURINE [Suspect]
     Dates: end: 20121203
  2. CYCLOPHOSPHAMIDE [Suspect]
     Dates: end: 20121120
  3. CYTARABINE [Suspect]
     Dates: end: 20121130
  4. METHOTREXATE [Suspect]
     Dates: end: 20121113
  5. VINCRISTINE SULFATE [Suspect]
     Dates: end: 20121212

REACTIONS (1)
  - Pancreatitis [None]
